FAERS Safety Report 18160753 (Version 3)
Quarter: 2020Q4

REPORT INFORMATION
  Report Type: Spontaneous
  Country: US (occurrence: US)
  Receive Date: 20200817
  Receipt Date: 20201230
  Transmission Date: 20210113
  Serious: Yes (Other)
  Sender: FDA-Public Use
  Company Number: US-GILEAD-2020-0489852

PATIENT
  Sex: Male
  Weight: 97.51 kg

DRUGS (90)
  1. AMPICILLIN [Concomitant]
     Active Substance: AMPICILLIN
  2. DAPSONE. [Concomitant]
     Active Substance: DAPSONE
  3. LEVETIRACETAM. [Concomitant]
     Active Substance: LEVETIRACETAM
  4. MECLIZINE HCL [Concomitant]
     Active Substance: MECLIZINE HYDROCHLORIDE
  5. MOXIFLOXACIN. [Concomitant]
     Active Substance: MOXIFLOXACIN
  6. VITAMINS NOS [Concomitant]
     Active Substance: VITAMINS
  7. PROMETHAZINE [Concomitant]
     Active Substance: PROMETHAZINE HYDROCHLORIDE
  8. TRAMADOL. [Concomitant]
     Active Substance: TRAMADOL
  9. TRUVADA [Suspect]
     Active Substance: EMTRICITABINE\TENOFOVIR DISOPROXIL FUMARATE
     Indication: HIV INFECTION
     Dosage: UNK
     Route: 048
     Dates: start: 20120828, end: 20120919
  10. ZIAGEN [Concomitant]
     Active Substance: ABACAVIR SULFATE
  11. AMPHOTERICIN B. [Concomitant]
     Active Substance: AMPHOTERICIN B
  12. ENOXAPARIN [Concomitant]
     Active Substance: ENOXAPARIN
  13. FLUCYTOSINE. [Concomitant]
     Active Substance: FLUCYTOSINE
  14. METRONIDAZOLE. [Concomitant]
     Active Substance: METRONIDAZOLE
  15. NITROFURANTOIN MONOHYDRATE MACROCRYSTALS [Concomitant]
     Active Substance: NITROFURANTOIN\NITROFURANTOIN MONOHYDRATE
  16. PYRAZINAMIDE. [Concomitant]
     Active Substance: PYRAZINAMIDE
  17. RANITIDINE HCL [Concomitant]
     Active Substance: RANITIDINE HYDROCHLORIDE
  18. SERTRALINE HCL [Concomitant]
     Active Substance: SERTRALINE HYDROCHLORIDE
  19. SILDENAFIL CITRATE. [Concomitant]
     Active Substance: SILDENAFIL CITRATE
  20. WARFARIN [Concomitant]
     Active Substance: WARFARIN
  21. STRIBILD [Suspect]
     Active Substance: COBICISTAT\ELVITEGRAVIR\EMTRICITABINE\TENOFOVIR DISOPROXIL FUMARATE
     Indication: PRODUCT USED FOR UNKNOWN INDICATION
     Dosage: UNK
     Route: 048
     Dates: start: 2012
  22. ASPIRIN [ACETYLSALICYLIC ACID] [Concomitant]
     Active Substance: ASPIRIN
  23. ATORVASTATIN [Concomitant]
     Active Substance: ATORVASTATIN
  24. CETIRIZINE [Concomitant]
     Active Substance: CETIRIZINE HYDROCHLORIDE
  25. ETHAMBUTOL [Concomitant]
     Active Substance: ETHAMBUTOL HYDROCHLORIDE
  26. FLUNISOLIDE. [Concomitant]
     Active Substance: FLUNISOLIDE
  27. HYDROXYZINE [Concomitant]
     Active Substance: HYDROXYZINE HYDROCHLORIDE
  28. INSULIN [Concomitant]
     Active Substance: INSULIN NOS
  29. OMEPRAZOLE. [Concomitant]
     Active Substance: OMEPRAZOLE
  30. PRAVASTATIN. [Concomitant]
     Active Substance: PRAVASTATIN
  31. PYRIDOXINE HCL [Concomitant]
     Active Substance: PYRIDOXINE HYDROCHLORIDE
  32. RIFAMPIN. [Concomitant]
     Active Substance: RIFAMPIN
  33. RIVAROXABAN [Concomitant]
     Active Substance: RIVAROXABAN
  34. ROSUVASTATIN CALCIUM. [Concomitant]
     Active Substance: ROSUVASTATIN CALCIUM
  35. SIMVASTATIN. [Concomitant]
     Active Substance: SIMVASTATIN
  36. EPZICOM [Concomitant]
     Active Substance: ABACAVIR SULFATE\LAMIVUDINE
  37. HYDROCODONE [Concomitant]
     Active Substance: HYDROCODONE
  38. CEFAZOLIN [Concomitant]
     Active Substance: CEFAZOLIN
  39. CEFEPIME [Concomitant]
     Active Substance: CEFEPIME HYDROCHLORIDE
  40. CEFTRIAXONE. [Concomitant]
     Active Substance: CEFTRIAXONE
  41. CHLORPROMAZINE. [Concomitant]
     Active Substance: CHLORPROMAZINE
  42. DEXAMETHASONE. [Concomitant]
     Active Substance: DEXAMETHASONE
  43. LAMIVUDINE. [Concomitant]
     Active Substance: LAMIVUDINE
  44. MEGESTROL ACETATE. [Concomitant]
     Active Substance: MEGESTROL ACETATE
  45. OLANZAPINE. [Concomitant]
     Active Substance: OLANZAPINE
  46. NORVIR [Concomitant]
     Active Substance: RITONAVIR
  47. ACETAMINOPHEN W/OXYCODONE [Concomitant]
     Active Substance: ACETAMINOPHEN\OXYCODONE HYDROCHLORIDE
  48. ALBUTEROL [SALBUTAMOL SULFATE] [Concomitant]
     Active Substance: ALBUTEROL SULFATE
  49. ALPRAZOLAM. [Concomitant]
     Active Substance: ALPRAZOLAM
  50. ATOVAQUONE. [Concomitant]
     Active Substance: ATOVAQUONE
  51. AZITHROMYCIN ANHYDROUS. [Concomitant]
     Active Substance: AZITHROMYCIN ANHYDROUS
  52. ERGOCALCIFEROL. [Concomitant]
     Active Substance: ERGOCALCIFEROL
  53. FLUDROCORTISONE ACETATE. [Concomitant]
     Active Substance: FLUDROCORTISONE ACETATE
  54. FOLIC ACID. [Concomitant]
     Active Substance: FOLIC ACID
  55. ISONIAZID. [Concomitant]
     Active Substance: ISONIAZID
  56. LAMOTRIGINE. [Concomitant]
     Active Substance: LAMOTRIGINE
  57. LORAZEPAM. [Concomitant]
     Active Substance: LORAZEPAM
  58. MIRTAZAPINE. [Concomitant]
     Active Substance: MIRTAZAPINE
  59. MORPHINE [Concomitant]
     Active Substance: MORPHINE
  60. ONDANSETRON [Concomitant]
     Active Substance: ONDANSETRON
  61. VANCOMYCIN [Concomitant]
     Active Substance: VANCOMYCIN
  62. VITAMIN C [Concomitant]
     Active Substance: ASCORBIC ACID
  63. PREZISTA [Concomitant]
     Active Substance: DARUNAVIR ETHANOLATE
  64. GABAPENTIN. [Concomitant]
     Active Substance: GABAPENTIN
  65. LORATADINE. [Concomitant]
     Active Substance: LORATADINE
  66. MAGNESIUM SULFATE. [Concomitant]
     Active Substance: MAGNESIUM SULFATE
  67. PSYLLIUM [PLANTAGO PSYLLIUM] [Concomitant]
     Active Substance: HERBALS\PLANTAGO INDICA WHOLE
  68. SULFAMETHOXAZOLE [Concomitant]
     Active Substance: SULFAMETHOXAZOLE
  69. TRIUMEQ [Concomitant]
     Active Substance: ABACAVIR SULFATE\DOLUTEGRAVIR SODIUM\LAMIVUDINE
  70. ACETAMINOPHEN. [Concomitant]
     Active Substance: ACETAMINOPHEN
  71. EFAVIRENZ. [Concomitant]
     Active Substance: EFAVIRENZ
  72. FERROUS GLUCONATE [Concomitant]
     Active Substance: FERROUS GLUCONATE
  73. FLUCONAZOLE. [Concomitant]
     Active Substance: FLUCONAZOLE
  74. HEPARIN [Concomitant]
     Active Substance: HEPARIN SODIUM
  75. K-PHOS [Concomitant]
     Active Substance: POTASSIUM PHOSPHATE, MONOBASIC
  76. TESTOSTERONE CYPIONATE. [Concomitant]
     Active Substance: TESTOSTERONE CYPIONATE
  77. VITAMIN B COMPLEX [Concomitant]
     Active Substance: CYANOCOBALAMIN\DEXPANTHENOL\NIACINAMIDE\PYRIDOXINE HYDROCHLORIDE\RIBOFLAVIN 5^-PHOSPHATE SODIUM\THIAMINE HYDROCHLORIDE\VITAMIN B COMPLEX
  78. ZINC. [Concomitant]
     Active Substance: ZINC
  79. ATRIPLA [Suspect]
     Active Substance: EFAVIRENZ\EMTRICITABINE\TENOFOVIR DISOPROXIL FUMARATE
     Indication: HIV INFECTION
     Dosage: UNK
     Route: 048
     Dates: start: 20121023
  80. EPIVIR [Concomitant]
     Active Substance: LAMIVUDINE
  81. ACYCLOVIR [ACICLOVIR] [Concomitant]
     Active Substance: ACYCLOVIR
  82. AMITRIPTYLINE [Concomitant]
     Active Substance: AMITRIPTYLINE
  83. DARUNAVIR [Concomitant]
     Active Substance: DARUNAVIR
  84. GLUCAGON. [Concomitant]
     Active Substance: GLUCAGON
  85. MIDAZOLAM. [Concomitant]
     Active Substance: MIDAZOLAM
  86. PIPERACILLIN/TAZOBACTAM [Concomitant]
     Active Substance: PIPERACILLIN SODIUM\TAZOBACTAM SODIUM
  87. PREDNISONE. [Concomitant]
     Active Substance: PREDNISONE
  88. RIFABUTIN. [Concomitant]
     Active Substance: RIFABUTIN
  89. THIAMINE. [Concomitant]
     Active Substance: THIAMINE
  90. TRAZODONE HYDROCHLORIDE. [Concomitant]
     Active Substance: TRAZODONE HYDROCHLORIDE

REACTIONS (7)
  - Multiple fractures [Recovered/Resolved]
  - Pain [Unknown]
  - Emotional distress [Unknown]
  - Anxiety [Unknown]
  - Anhedonia [Unknown]
  - Bone density decreased [Recovered/Resolved]
  - Renal impairment [Not Recovered/Not Resolved]

NARRATIVE: CASE EVENT DATE: 2013
